FAERS Safety Report 5713870-1 (Version None)
Quarter: 2008Q2

REPORT INFORMATION
  Report Type: 
  Country: None (occurrence: None)
  Receive Date: 20080421
  Receipt Date: 20080404
  Transmission Date: 20081010
  Serious: Yes (Death)
  Sender: FDA-Public Use
  Company Number: A-CH2008-20109

PATIENT
  Age: 78 Year
  Sex: Female
  Weight: 68 kg

DRUGS (2)
  1. TRACLEER [Suspect]
     Indication: PULMONARY HYPERTENSION
     Dosage: 125 MG, BID; 62.5 MG, BID, ORAL
     Route: 048
     Dates: start: 20040501, end: 20040601
  2. TRACLEER [Suspect]
     Indication: PULMONARY HYPERTENSION
     Dosage: 125 MG, BID; 62.5 MG, BID, ORAL
     Route: 048
     Dates: start: 20040601

REACTIONS (5)
  - ANKLE FRACTURE [None]
  - ARTERIAL OCCLUSIVE DISEASE [None]
  - DECUBITUS ULCER [None]
  - INFECTION [None]
  - PERIPHERAL VASCULAR DISORDER [None]
